FAERS Safety Report 5714798-3 (Version None)
Quarter: 2008Q2

REPORT INFORMATION
  Report Type: 
  Country: None (occurrence: None)
  Receive Date: 20080423
  Receipt Date: 20080416
  Transmission Date: 20081010
  Serious: Yes (Hospitalization)
  Sender: FDA-Public Use
  Company Number: AU-JNJFOC-20080404486

PATIENT
  Sex: Female

DRUGS (6)
  1. RISPERIDONE [Suspect]
     Indication: DRUG USE FOR UNKNOWN INDICATION
  2. ASPIRIN [Concomitant]
  3. COLOXYL WITH SENNA [Concomitant]
  4. GLICLAZIDE [Concomitant]
  5. METFORMIN HCL [Concomitant]
  6. OXAZEPAM [Concomitant]

REACTIONS (1)
  - HYPONATRAEMIA [None]
